FAERS Safety Report 9016679 (Version 1)
Quarter: 2013Q1

REPORT INFORMATION
  Report Type: Spontaneous
  Country: IT (occurrence: IT)
  Receive Date: 20130116
  Receipt Date: 20130116
  Transmission Date: 20140127
  Serious: Yes (Other)
  Sender: FDA-Public Use
  Company Number: IT-TEVA-379188ISR

PATIENT
  Age: 73 Year
  Sex: Female

DRUGS (3)
  1. METOTRESSATO TEVA [Suspect]
     Indication: BREAST CANCER
     Dosage: 65.2 MILLIGRAM DAILY;
     Route: 042
     Dates: start: 20120116, end: 20120307
  2. FLUOROURACILE [Suspect]
     Dosage: 978 MILLIGRAM DAILY;
     Route: 042
     Dates: start: 20120116, end: 20120307
  3. ENDOXAN BAXTER [Suspect]
     Dosage: 1100 MILLIGRAM DAILY; 50MG TABLETS
     Route: 048
     Dates: start: 20120116, end: 20120307

REACTIONS (1)
  - Hyperpyrexia [Recovered/Resolved]
